FAERS Safety Report 8113927-4 (Version None)
Quarter: 2012Q1

REPORT INFORMATION
  Report Type: 
  Country: None (occurrence: None)
  Receive Date: 20120203
  Receipt Date: 20120130
  Transmission Date: 20120608
  Serious: Yes (Other)
  Sender: FDA-Public Use
  Company Number: US-PFIZER INC-2012008876

PATIENT
  Sex: Female
  Weight: 50.8 kg

DRUGS (8)
  1. CELEXA [Concomitant]
     Dosage: UNK
  2. LYRICA [Suspect]
  3. MULTI-VITAMINS [Concomitant]
     Dosage: UNK
  4. LYRICA [Suspect]
     Indication: FIBROMYALGIA
     Dosage: 75 MG, 2X/DAY
     Route: 048
     Dates: start: 20091020, end: 20110901
  5. PROTONIX [Concomitant]
     Dosage: UNK
  6. HYDROCODONE [Concomitant]
     Dosage: UNK
  7. AMBIEN [Concomitant]
     Indication: SLEEP DISORDER
     Dosage: UNK
  8. NYQUIL [Concomitant]
     Dosage: UNK

REACTIONS (7)
  - UPPER RESPIRATORY TRACT INFECTION [None]
  - SYNCOPE [None]
  - BACK DISORDER [None]
  - CHRONIC OBSTRUCTIVE PULMONARY DISEASE [None]
  - SINUSITIS [None]
  - PAIN [None]
  - VIRAL INFECTION [None]
